FAERS Safety Report 7903799-2 (Version None)
Quarter: 2011Q4

REPORT INFORMATION
  Report Type: 
  Country: None (occurrence: None)
  Receive Date: 20111109
  Receipt Date: 20111102
  Transmission Date: 20120403
  Serious: Yes (Death, Hospitalization)
  Sender: FDA-Public Use
  Company Number: JP-SANOFI-AVENTIS-2011SA073107

PATIENT
  Sex: Male

DRUGS (1)
  1. PLAVIX [Suspect]
     Route: 065

REACTIONS (4)
  - THROMBOCYTOPENIA [None]
  - HEADACHE [None]
  - THROMBOTIC THROMBOCYTOPENIC PURPURA [None]
  - PYREXIA [None]
